FAERS Safety Report 7656209-7 (Version None)
Quarter: 2011Q3

REPORT INFORMATION
  Report Type: 
  Country: None (occurrence: None)
  Receive Date: 20110801
  Receipt Date: 20110720
  Transmission Date: 20111222
  Serious: No
  Sender: FDA-Public Use
  Company Number: DSJ-2011-09155

PATIENT
  Age: 46 Year
  Sex: Female

DRUGS (5)
  1. BI-PROFENID (KETOPROFEN) (KETOPROFEN) [Concomitant]
  2. BENICAR [Suspect]
     Indication: HYPERTENSION
     Dosage: 40/5 MG (1 IN 1 D),PER ORAL
     Route: 048
     Dates: start: 20110504, end: 20110601
  3. NORFLOXACIN (NORFLOXACIN) (NORFLOXACIN) [Concomitant]
  4. HYDROCHLOROTHIAZIDE [Concomitant]
  5. ATENOLOL [Concomitant]

REACTIONS (6)
  - MUSCLE TIGHTNESS [None]
  - ASTHENIA [None]
  - BLOOD PRESSURE FLUCTUATION [None]
  - HYPERHIDROSIS [None]
  - HEADACHE [None]
  - BRADYCARDIA [None]
